FAERS Safety Report 14010672 (Version 1)
Quarter: 2017Q3

REPORT INFORMATION
  Report Type: Report from Study
  Country: None (occurrence: AU)
  Receive Date: 20170926
  Receipt Date: 20170926
  Transmission Date: 20171128
  Serious: Yes (Hospitalization, Other)
  Sender: FDA-Public Use
  Company Number: AU-ABBVIE-17K-008-2108693-00

PATIENT
  Age: 64 Year
  Sex: Female

DRUGS (1)
  1. HUMIRA [Suspect]
     Active Substance: ADALIMUMAB
     Indication: PSORIATIC ARTHROPATHY
     Route: 058
     Dates: start: 20150402

REACTIONS (5)
  - Viral infection [Recovering/Resolving]
  - Post procedural infection [Recovered/Resolved]
  - Post procedural complication [Unknown]
  - Cardiac disorder [Unknown]
  - Appendicectomy [Unknown]

NARRATIVE: CASE EVENT DATE: 2017
